FAERS Safety Report 17700546 (Version 1)
Quarter: 2020Q2

REPORT INFORMATION
  Report Type: Spontaneous
  Country: US (occurrence: US)
  Receive Date: 20200423
  Receipt Date: 20200423
  Transmission Date: 20200714
  Serious: No
  Sender: FDA-Public Use
  Company Number: US-ABBVIE-20K-163-3238910-00

PATIENT
  Sex: Female

DRUGS (1)
  1. ORILISSA [Suspect]
     Active Substance: ELAGOLIX SODIUM
     Indication: PRODUCT USED FOR UNKNOWN INDICATION
     Dosage: DIFFERENT MG OF ORILISSA
     Route: 048

REACTIONS (4)
  - Depression [Unknown]
  - Migraine [Unknown]
  - Unevaluable event [Unknown]
  - Drug ineffective [Unknown]
